FAERS Safety Report 21616016 (Version 1)
Quarter: 2022Q4

REPORT INFORMATION
  Report Type: Report from Study
  Country: US (occurrence: US)
  Receive Date: 20221118
  Receipt Date: 20221118
  Transmission Date: 20230112
  Serious: No
  Sender: FDA-Public Use
  Company Number: US-ABBVIE-22K-163-4515079-00

PATIENT
  Sex: Male

DRUGS (1)
  1. IMBRUVICA [Suspect]
     Active Substance: IBRUTINIB
     Indication: Non-Hodgkin^s lymphoma
     Dosage: IN THE MORNING WITH FOOD
     Route: 048
     Dates: start: 20191224

REACTIONS (4)
  - Balance disorder [Unknown]
  - Drug ineffective [Unknown]
  - Joint swelling [Unknown]
  - Ear pain [Unknown]
